FAERS Safety Report 13533462 (Version 1)
Quarter: 2017Q2

REPORT INFORMATION
  Report Type: Report from Study
  Country: None (occurrence: IL)
  Receive Date: 20170510
  Receipt Date: 20170510
  Transmission Date: 20170830
  Serious: Yes (Hospitalization, Disabling, Other)
  Sender: FDA-Public Use
  Company Number: IL-ABBVIE-17P-082-1964511-00

PATIENT
  Age: 69 Year
  Sex: Male
  Weight: 71 kg

DRUGS (11)
  1. DUOPA [Suspect]
     Active Substance: CARBIDOPA\LEVODOPA
     Indication: PARKINSON^S DISEASE
     Dosage: TITRATION PHASE: 16HR: MORNING DOSE 7ML, CONTINUOUS DOSE: 2.2ML/H, EXTRA DOSE: 3ML
     Route: 050
     Dates: start: 20160908, end: 20160911
  2. GLYCEROL [Concomitant]
     Active Substance: GLYCERIN
     Indication: CONSTIPATION
     Route: 054
  3. DIPYRONE [Concomitant]
     Active Substance: DIPYRONE
     Indication: PAIN MANAGEMENT
     Route: 048
     Dates: start: 201609, end: 201609
  4. SINEMET RETARD 29/M [Concomitant]
     Indication: PARKINSON^S DISEASE
     Dosage: 1 (CARBIDOPA 50MG/LEVODOPA 200MG
     Route: 048
  5. SINEMET RETARD 29/M [Concomitant]
     Route: 048
  6. DOPICAR [Concomitant]
     Active Substance: CARBIDOPA\LEVODOPA
     Indication: PARKINSON^S DISEASE
     Route: 048
  7. ESCITALOPRAM [Concomitant]
     Active Substance: ESCITALOPRAM OXALATE
     Indication: DEPRESSION
     Route: 048
  8. LACTULOSE SOL [Concomitant]
     Indication: CONSTIPATION
     Route: 048
  9. DOMPERIDONE [Concomitant]
     Active Substance: DOMPERIDONE
     Indication: PRODUCT USED FOR UNKNOWN INDICATION
     Route: 048
  10. DUOPA [Suspect]
     Active Substance: CARBIDOPA\LEVODOPA
     Route: 050
     Dates: start: 20160919
  11. CLONAZEPAM. [Concomitant]
     Active Substance: CLONAZEPAM
     Indication: DEPRESSION
     Route: 048

REACTIONS (1)
  - Femoral neck fracture [Recovered/Resolved]

NARRATIVE: CASE EVENT DATE: 20170409
